FAERS Safety Report 5515326-8 (Version None)
Quarter: 2007Q4

REPORT INFORMATION
  Report Type: 
  Country: None (occurrence: None)
  Receive Date: 20071113
  Receipt Date: 20071018
  Transmission Date: 20080405
  Serious: No
  Sender: FDA-Public Use
  Company Number: US-BOEHRINGER INGELHEIM PHARMACEUTICALS, INC.-2007-BP-23067BP

PATIENT
  Age: 75 Year
  Sex: Male

DRUGS (14)
  1. SPIRIVA [Suspect]
     Indication: CHRONIC OBSTRUCTIVE PULMONARY DISEASE
     Route: 055
     Dates: start: 20070101
  2. ALFUZOSIN HCL [Concomitant]
  3. CLONIDINE [Concomitant]
  4. SIMVASTATIN [Concomitant]
  5. FELODIPINE [Concomitant]
  6. BUPROPION HCL [Concomitant]
  7. CLONAZEPAM [Concomitant]
  8. LORAZEPAM [Concomitant]
  9. ERGOCALCIFEROL [Concomitant]
  10. PANTOPRAZOLE SODIUM [Concomitant]
  11. FORADIL [Concomitant]
  12. ASMANEX TWISTHALER [Concomitant]
  13. ALBUTEROL [Concomitant]
  14. TRAVATAN [Concomitant]

REACTIONS (1)
  - TREMOR [None]
